FAERS Safety Report 10085038 (Version 1)
Quarter: 2014Q2

REPORT INFORMATION
  Report Type: Other
  Country: GB (occurrence: GB)
  Receive Date: 20140417
  Receipt Date: 20140417
  Transmission Date: 20141212
  Serious: Yes (Other)
  Sender: FDA-Public Use
  Company Number: GB-BRISTOL-MYERS SQUIBB COMPANY-20636825

PATIENT
  Sex: 0

DRUGS (2)
  1. METFORMIN HCL [Suspect]
     Route: 064
  2. INSULIN [Suspect]
     Route: 064

REACTIONS (3)
  - Foetal distress syndrome [Unknown]
  - Foetal macrosomia [Unknown]
  - Foetal exposure during pregnancy [Unknown]
